FAERS Safety Report 10789300 (Version 1)
Quarter: 2015Q1

REPORT INFORMATION
  Report Type: Spontaneous
  Country: US (occurrence: US)
  Receive Date: 20150212
  Receipt Date: 20150212
  Transmission Date: 20150721
  Serious: No
  Sender: FDA-Public Use
  Company Number: US-GLAXOSMITHKLINE-A1060669A

PATIENT

DRUGS (8)
  1. SPIRONOLACTONE. [Concomitant]
     Active Substance: SPIRONOLACTONE
  2. ARIXTRA [Suspect]
     Active Substance: FONDAPARINUX SODIUM
     Indication: THROMBOSIS PROPHYLAXIS
     Route: 058
     Dates: start: 20130305
  3. XELODA TABLET [Suspect]
     Active Substance: CAPECITABINE
     Indication: NEOPLASM MALIGNANT
     Dosage: REGIMEN WAS REDUCED TO 1500 MG TWICE DAILY FOR 14 DAYS FOLLOWED BY 7 DAYS OF REST, REPEAT EVERY[...]
     Route: 048
     Dates: start: 20130103
  4. LISINOPRIL-HYDROCHLOROTHIAZIDE [Concomitant]
     Active Substance: HYDROCHLOROTHIAZIDE\LISINOPRIL
  5. AMLODIPINE [Concomitant]
     Active Substance: AMLODIPINE BESYLATE
  6. ZOLPIDEM [Concomitant]
     Active Substance: ZOLPIDEM\ZOLPIDEM TARTRATE
  7. VITAMINS [Concomitant]
     Active Substance: VITAMINS
  8. ROBAXIN [Concomitant]
     Active Substance: METHOCARBAMOL

REACTIONS (6)
  - Hypertension [Recovering/Resolving]
  - Asthenia [Recovering/Resolving]
  - Poor quality sleep [Recovering/Resolving]
  - Sluggishness [Recovering/Resolving]
  - Thrombophlebitis superficial [Recovered/Resolved]
  - Musculoskeletal pain [Recovering/Resolving]
